FAERS Safety Report 25380657 (Version 2)
Quarter: 2025Q3

REPORT INFORMATION
  Report Type: Report from Study
  Country: US (occurrence: US)
  Receive Date: 20250530
  Receipt Date: 20250821
  Transmission Date: 20251021
  Serious: Yes (Other)
  Sender: ROCHE
  Company Number: US-ROCHE-10000291814

PATIENT
  Age: 70 Year
  Sex: Male
  Weight: 81.64 kg

DRUGS (31)
  1. XOLAIR [Suspect]
     Active Substance: OMALIZUMAB
     Indication: Asthma
     Route: 058
  2. XOLAIR [Suspect]
     Active Substance: OMALIZUMAB
     Dosage: 150MG/ML
     Route: 058
  3. XOLAIR [Suspect]
     Active Substance: OMALIZUMAB
     Indication: Chronic obstructive pulmonary disease
     Route: 058
  4. ALBUTEROL SULFATE [Concomitant]
     Active Substance: ALBUTEROL SULFATE
     Route: 055
  5. CARVEDILOL [Concomitant]
     Active Substance: CARVEDILOL
     Route: 048
  6. CLOPIDOGREL [Concomitant]
     Active Substance: CLOPIDOGREL BISULFATE
     Route: 048
  7. EPINEPHRINE [Concomitant]
     Active Substance: EPINEPHRINE
  8. FENOFIBRATE [Concomitant]
     Active Substance: FENOFIBRATE
     Route: 048
  9. FLUTICASONE PROPIONATE [Concomitant]
     Active Substance: FLUTICASONE PROPIONATE
     Dosage: 50 MCG ACTUATION
     Route: 050
  10. FUROSEMIDE [Concomitant]
     Active Substance: FUROSEMIDE
  11. GLIMEPIRIDE [Concomitant]
     Active Substance: GLIMEPIRIDE
     Route: 048
  12. GLIMEPIRIDE [Concomitant]
     Active Substance: GLIMEPIRIDE
     Route: 048
  13. HYDRALAZINE [Concomitant]
     Active Substance: HYDRALAZINE HYDROCHLORIDE
     Route: 048
  14. ALBUTEROL\IPRATROPIUM [Concomitant]
     Active Substance: ALBUTEROL\IPRATROPIUM
     Dosage: 0.5 MG-3MG /3ML ?USE 1 AMPULE IN NEBULIZER
  15. IRON [Concomitant]
     Active Substance: IRON
  16. LEVETIRACETAM [Concomitant]
     Active Substance: LEVETIRACETAM
     Route: 048
  17. LEVOTHYROXINE [Concomitant]
     Active Substance: LEVOTHYROXINE
     Dosage: 150 MCG
     Route: 048
  18. LOSARTAN [Concomitant]
     Active Substance: LOSARTAN
     Route: 048
  19. MELATONIN [Concomitant]
     Active Substance: MELATONIN
     Route: 048
  20. METOPROLOL SUCCINATE [Concomitant]
     Active Substance: METOPROLOL SUCCINATE
     Route: 048
  21. MONTELUKAST [Concomitant]
     Active Substance: MONTELUKAST
     Route: 048
  22. MUCINEX [Concomitant]
     Active Substance: GUAIFENESIN
     Route: 048
  23. NALOXONE [Concomitant]
     Active Substance: NALOXONE
     Route: 045
  24. OMEPRAZOLE [Concomitant]
     Active Substance: OMEPRAZOLE
     Route: 048
  25. OXYBUTYNIN CHLORIDE [Concomitant]
     Active Substance: OXYBUTYNIN CHLORIDE
     Route: 048
  26. OXYCODONE [Concomitant]
     Active Substance: OXYCODONE
     Route: 048
  27. PREDNISONE [Concomitant]
     Active Substance: PREDNISONE
     Route: 048
  28. SODIUM CHLORIDE [Concomitant]
     Active Substance: SODIUM CHLORIDE
     Dosage: 7% NEBULIZATION
  29. TAMSULOSIN [Concomitant]
     Active Substance: TAMSULOSIN
     Route: 048
  30. TYLENOL [Concomitant]
     Active Substance: ACETAMINOPHEN
     Route: 048
  31. VITAMIN D3 [Concomitant]
     Active Substance: CHOLECALCIFEROL

REACTIONS (42)
  - Fall [Unknown]
  - Hypogonadism [Unknown]
  - Endocrine disorder [Unknown]
  - Metabolic acidosis [Unknown]
  - Hyperkalaemia [Unknown]
  - Cardiomyopathy [Unknown]
  - Cardiac failure congestive [Unknown]
  - Cerebrovascular accident [Unknown]
  - Pharyngitis [Unknown]
  - Bronchiectasis [Unknown]
  - Cholelithiasis [Unknown]
  - Acute kidney injury [Unknown]
  - Benign prostatic hyperplasia [Unknown]
  - Benign prostatic hyperplasia [Unknown]
  - Osteoarthritis [Unknown]
  - Septic shock [Unknown]
  - Carpal tunnel syndrome [Unknown]
  - Haemorrhoids [Unknown]
  - Arthralgia [Unknown]
  - Humerus fracture [Unknown]
  - Upper limb fracture [Unknown]
  - Overweight [Unknown]
  - Oedema peripheral [Unknown]
  - Injury [Unknown]
  - Hyperlipidaemia [Unknown]
  - Essential hypertension [Unknown]
  - Arteriosclerosis coronary artery [Unknown]
  - Cardiac failure [Unknown]
  - Gastrooesophageal reflux disease [Unknown]
  - Chronic kidney disease [Unknown]
  - Seizure [Unknown]
  - Tibia fracture [Unknown]
  - Off label use [Unknown]
  - Pneumonia [Unknown]
  - Subdural haemorrhage [Unknown]
  - Concussion [Unknown]
  - Off label use [Unknown]
  - Cerebral haemorrhage [Unknown]
  - Thrombosis [Unknown]
  - Lower limb fracture [Recovered/Resolved]
  - Cerebrovascular accident [Unknown]
  - Fluid retention [Unknown]

NARRATIVE: CASE EVENT DATE: 20180720
